FAERS Safety Report 24204648 (Version 4)
Quarter: 2024Q4

REPORT INFORMATION
  Report Type: Spontaneous
  Country: CA (occurrence: CA)
  Receive Date: 20240813
  Receipt Date: 20241125
  Transmission Date: 20250114
  Serious: Yes (Hospitalization, Other)
  Sender: PFIZER
  Company Number: CA-PFIZER INC-PV202400104691

PATIENT
  Age: 75 Year
  Sex: Male
  Weight: 76.5 kg

DRUGS (3)
  1. RUXIENCE [Suspect]
     Active Substance: RITUXIMAB-PVVR
     Indication: Rheumatoid arthritis
     Dosage: 1000 MG, DAYS 1 AND 15
     Route: 042
     Dates: start: 20210226
  2. RUXIENCE [Suspect]
     Active Substance: RITUXIMAB-PVVR
     Dosage: 1000 MG, DAYS 1 AND 15
     Route: 042
     Dates: start: 20240315
  3. RUXIENCE [Suspect]
     Active Substance: RITUXIMAB-PVVR
     Dosage: 1000 MG, FREQUENCY: 6 MONTHS
     Route: 042
     Dates: start: 20240917

REACTIONS (5)
  - Pulmonary embolism [Unknown]
  - Benign prostatic hyperplasia [Unknown]
  - Blood pressure systolic increased [Unknown]
  - Heart rate irregular [Unknown]
  - Off label use [Unknown]

NARRATIVE: CASE EVENT DATE: 20240701
